FAERS Safety Report 8090467-2 (Version None)
Quarter: 2012Q1

REPORT INFORMATION
  Report Type: 
  Country: None (occurrence: None)
  Receive Date: 20120129
  Receipt Date: 20111121
  Transmission Date: 20120608
  Serious: Yes (Hospitalization)
  Sender: FDA-Public Use
  Company Number: US-ABBOTT-11P-163-0876062-00

PATIENT
  Sex: Male
  Weight: 65.83 kg

DRUGS (2)
  1. HUMIRA [Suspect]
     Indication: PSORIATIC ARTHROPATHY
  2. HUMIRA [Suspect]
     Indication: PSORIASIS
     Dosage: UNKNOWN
     Dates: start: 20070101, end: 20100101

REACTIONS (5)
  - PYREXIA [None]
  - WEIGHT DECREASED [None]
  - DYSPNOEA [None]
  - PNEUMONIA [None]
  - TREMOR [None]
